FAERS Safety Report 5334378-1 (Version None)
Quarter: 2007Q2

REPORT INFORMATION
  Report Type: 
  Country: None (occurrence: None)
  Receive Date: 20070522
  Receipt Date: 20070509
  Transmission Date: 20071010
  Serious: Yes (Death)
  Sender: FDA-Public Use
  Company Number: 156342USA

PATIENT
  Age: 49 Year
  Sex: Male

DRUGS (2)
  1. HYDROCHLOROTHIAZIDE [Suspect]
     Indication: HYPERTENSION
     Dosage: 12.5 MG (12.5 MG, 1 IN 1 D)
  2. LISINOPRIL [Suspect]
     Indication: HYPERTENSION
     Dosage: 10 MG (10 MG, 1 IN 1 D)

REACTIONS (9)
  - ACUTE RESPIRATORY DISTRESS SYNDROME [None]
  - ALANINE AMINOTRANSFERASE INCREASED [None]
  - ASPARTATE AMINOTRANSFERASE INCREASED [None]
  - BLOOD CREATINE INCREASED [None]
  - HAEMOGLOBIN DECREASED [None]
  - MULTI-ORGAN FAILURE [None]
  - PANCREATITIS NECROTISING [None]
  - RESPIRATORY RATE INCREASED [None]
  - SHOCK [None]
